FAERS Safety Report 4630318-9 (Version None)
Quarter: 2005Q2

REPORT INFORMATION
  Report Type: 
  Country: None (occurrence: None)
  Receive Date: 20050405
  Receipt Date: 20050405
  Transmission Date: 20051028
  Serious: Yes (Death, Life-Threatening, Hospitalization)
  Sender: FDA-Public Use
  Company Number: None

PATIENT
  Age: 70 Year
  Sex: Female
  Weight: 69.8539 kg

DRUGS (2)
  1. GEMZAR [Suspect]
     Indication: PANCREATIC CARCINOMA
     Dosage: 1000MG/M2 IV QWX1
     Route: 042
     Dates: start: 20041209, end: 20050120
  2. ARANESP [Concomitant]

REACTIONS (2)
  - PULMONARY EMBOLISM [None]
  - SPLENIC RUPTURE [None]
